APPROVED DRUG PRODUCT: TERRAMYCIN W/ POLYMYXIN B SULFATE
Active Ingredient: OXYTETRACYCLINE HYDROCHLORIDE; POLYMYXIN B SULFATE
Strength: EQ 5MG BASE/GM;10,000 UNITS/GM
Dosage Form/Route: OINTMENT;OPHTHALMIC
Application: N061015 | Product #001
Applicant: CASPER PHARMA LLC
Approved: Approved Prior to Jan 1, 1982 | RLD: No | RS: No | Type: DISCN